FAERS Safety Report 4494849-7 (Version None)
Quarter: 2004Q4

REPORT INFORMATION
  Report Type: 
  Country: None (occurrence: None)
  Receive Date: 20041103
  Receipt Date: 20041025
  Transmission Date: 20050328
  Serious: Yes (Hospitalization)
  Sender: FDA-Public Use
  Company Number: 2004-121619-NL

PATIENT
  Age: 68 Year
  Sex: Female

DRUGS (9)
  1. MIRTAZAPINE [Suspect]
     Dosage: 45 MG ORAL
     Route: 048
     Dates: start: 20030306, end: 20030326
  2. VENLAFAXINE HYDROCHLORIDE [Suspect]
     Dosage: 75 MG/150MG/225MG ORAL
     Route: 048
     Dates: start: 20030318, end: 20030325
  3. VENLAFAXINE HYDROCHLORIDE [Suspect]
     Dosage: 75 MG/150MG/225MG ORAL
     Route: 048
     Dates: start: 20030326, end: 20030409
  4. VENLAFAXINE HYDROCHLORIDE [Suspect]
     Dosage: 75 MG/150MG/225MG ORAL
     Route: 048
     Dates: start: 20030410, end: 20030506
  5. TRIAMTERENE AND HYDROCHLOROTHIAZIDE [Suspect]
     Indication: DIURETIC THERAPY
     Dosage: 0.5 DF
     Dates: start: 20030315, end: 20030412
  6. OLANZAPINE [Concomitant]
  7. LORAZEPAM [Concomitant]
  8. ACETYLSALICYLIC ACID [Concomitant]
  9. METOPROLOL SUCCINATE [Concomitant]

REACTIONS (2)
  - DRUG INTERACTION [None]
  - HYPONATRAEMIA [None]
